FAERS Safety Report 5104705-9 (Version None)
Quarter: 2006Q3

REPORT INFORMATION
  Report Type: 
  Country: None (occurrence: None)
  Receive Date: 20060731
  Receipt Date: 20050606
  Transmission Date: 20061208
  Serious: Yes (Other)
  Sender: FDA-Public Use
  Company Number: US-JNJFOC-20050602981

PATIENT
  Sex: Female
  Weight: 66.2252 kg

DRUGS (13)
  1. RISPERDAL [Suspect]
     Indication: DRUG USE FOR UNKNOWN INDICATION
  2. EXTRA STRENGTH TYLENOL [Suspect]
     Indication: INSOMNIA
     Dosage: 1DOSE (S) , 1 IN 1 DAY , ORAL
     Route: 048
  3. REMERON [Suspect]
     Indication: DRUG USE FOR UNKNOWN INDICATION
  4. SINEMET [Suspect]
     Indication: DRUG USE FOR UNKNOWN INDICATION
  5. ATACAND [Suspect]
     Indication: DRUG USE FOR UNKNOWN INDICATION
  6. DIPYRIDAMOLE [Suspect]
     Indication: DRUG USE FOR UNKNOWN INDICATION
  7. ACIPHEX [Suspect]
     Indication: DRUG USE FOR UNKNOWN INDICATION
  8. LEVOTHYROXINE SODIUM [Suspect]
     Indication: DRUG USE FOR UNKNOWN INDICATION
  9. NEURONTIN [Suspect]
     Indication: DRUG USE FOR UNKNOWN INDICATION
  10. FOLTEX (ALL OTHER THERAPEUTIC PRODUCTS) [Suspect]
     Indication: DRUG USE FOR UNKNOWN INDICATION
  11. ACTONEL [Suspect]
     Indication: DRUG USE FOR UNKNOWN INDICATION
  12. CRESTOR [Suspect]
     Indication: DRUG USE FOR UNKNOWN INDICATION
  13. PRIHEXPHENIDGE (ALL OTHER THERAPEUTIC PRODUCTS) [Suspect]
     Indication: DRUG USE FOR UNKNOWN INDICATION

REACTIONS (2)
  - DRY MOUTH [None]
  - THROMBOSIS [None]
